FAERS Safety Report 8702157 (Version 2)
Quarter: 2013Q4

REPORT INFORMATION
  Report Type: Report from Study
  Country: FR (occurrence: FR)
  Receive Date: 20120803
  Receipt Date: 20131101
  Transmission Date: 20140711
  Serious: Yes (Hospitalization)
  Sender: FDA-Public Use
  Company Number: FR-009507513-1207FRA010028

PATIENT
  Age: 58 Year
  Sex: Male
  Weight: 102 kg

DRUGS (15)
  1. BOCEPREVIR [Suspect]
     Indication: HEPATITIS C
     Dosage: 800 MG, TID
     Route: 048
     Dates: start: 20110421
  2. VIRAFERONPEG [Suspect]
     Indication: HEPATITIS C
     Dosage: 150 MICROGRAM, QW
     Dates: start: 20110311
  3. REBETOL [Suspect]
     Indication: HEPATITIS C
     Dosage: 1200 MG, QD
     Dates: start: 20110311
  4. NEORECORMON [Concomitant]
     Indication: ANAEMIA
     Dosage: 20000 IU, QW
     Dates: start: 20110518
  5. NEORECORMON [Concomitant]
     Dosage: 6000 IU, QW
     Dates: start: 20110616
  6. NEUPOGEN [Concomitant]
     Indication: NEUTROPENIA
     Dosage: UNK
     Dates: start: 201105
  7. DAFALGAN [Concomitant]
     Indication: PAIN
     Dosage: UNK, PRN
     Dates: start: 20110421
  8. ALDACTONE TABLETS [Concomitant]
     Indication: PRODUCT USED FOR UNKNOWN INDICATION
     Dosage: 75 MG, QD
     Dates: start: 20110421
  9. FUROSEMIDE [Concomitant]
     Indication: PRODUCT USED FOR UNKNOWN INDICATION
     Dosage: UNK
  10. INEXIUM [Concomitant]
     Indication: OESOPHAGITIS
     Dosage: 40 MG, QD
  11. PROPRANOLOL HYDROCHLORIDE [Concomitant]
     Indication: PRODUCT USED FOR UNKNOWN INDICATION
     Dosage: 160 MG, QD
  12. SEROPLEX [Concomitant]
     Indication: DEPRESSION
     Dosage: 10 MG, QD
  13. SPIRONOLACTONE [Concomitant]
     Indication: PRODUCT USED FOR UNKNOWN INDICATION
     Dosage: 50 MG, UNKNOWN
  14. DUPHALAC [Concomitant]
     Indication: CONSTIPATION
     Dosage: UNK, PRN
     Dates: start: 20110616
  15. SERESTA [Concomitant]
     Indication: INSOMNIA
     Dosage: 5 MG, QD
     Dates: start: 20110713

REACTIONS (1)
  - Anaemia [Recovered/Resolved]
